FAERS Safety Report 12273016 (Version 1)
Quarter: 2016Q2

REPORT INFORMATION
  Report Type: Spontaneous
  Country: US (occurrence: US)
  Receive Date: 20160415
  Receipt Date: 20160415
  Transmission Date: 20160815
  Serious: No
  Sender: FDA-Public Use
  Company Number: US-ROCHE-1404116

PATIENT
  Age: 65 Year
  Sex: Female

DRUGS (7)
  1. PROTONIX [Concomitant]
     Active Substance: PANTOPRAZOLE SODIUM
     Indication: GASTROOESOPHAGEAL REFLUX DISEASE
     Route: 065
  2. METFORMIN [Concomitant]
     Active Substance: METFORMIN HYDROCHLORIDE
     Indication: TYPE 2 DIABETES MELLITUS
     Route: 065
  3. RIBASPHERE [Suspect]
     Active Substance: RIBAVIRIN
     Indication: CHRONIC HEPATITIS C
     Dosage: DIVIDED DOSAGE 800/600
     Route: 048
     Dates: start: 20140502
  4. SOVALDI [Suspect]
     Active Substance: SOFOSBUVIR
     Indication: CHRONIC HEPATITIS C
     Route: 065
     Dates: start: 20140502
  5. BENICAR [Concomitant]
     Active Substance: OLMESARTAN MEDOXOMIL
     Indication: HYPERLIPIDAEMIA
  6. CELEXA [Suspect]
     Active Substance: CITALOPRAM HYDROBROMIDE
     Indication: PRODUCT USED FOR UNKNOWN INDICATION
     Route: 065
  7. PEGASYS [Suspect]
     Active Substance: PEGINTERFERON ALFA-2A
     Indication: CHRONIC HEPATITIS C
     Route: 058
     Dates: start: 20140502

REACTIONS (18)
  - Therapy cessation [None]
  - Vertigo [Unknown]
  - Blood magnesium decreased [Unknown]
  - Drug administration error [Unknown]
  - Myalgia [Unknown]
  - Pollakiuria [None]
  - Dry mouth [Unknown]
  - Oral mucosal eruption [Unknown]
  - Nausea [Unknown]
  - Irritability [Unknown]
  - Abdominal pain upper [Unknown]
  - Crying [Unknown]
  - Decreased appetite [Unknown]
  - Fatigue [Unknown]
  - Wrong technique in product usage process [None]
  - Fluid intake reduced [None]
  - Hypoaesthesia [Unknown]
  - Inability to afford medication [None]

NARRATIVE: CASE EVENT DATE: 20140516
